FAERS Safety Report 23483202 (Version 1)
Quarter: 2024Q1

REPORT INFORMATION
  Report Type: Other
  Country: PL (occurrence: PL)
  Receive Date: 20240205
  Receipt Date: 20240205
  Transmission Date: 20240410
  Serious: Yes (Other)
  Sender: FDA-Public Use
  Company Number: None

PATIENT
  Age: 74 Year
  Sex: Male

DRUGS (1)
  1. ENZALUTAMIDE [Suspect]
     Active Substance: ENZALUTAMIDE
     Indication: Product used for unknown indication
     Dosage: 40 MG, EVERY 6 HOURS (ONGOING THERAPY)
     Route: 048
     Dates: start: 20190923

REACTIONS (4)
  - Depression [Unknown]
  - Polyneuropathy [Unknown]
  - Asthenia [Unknown]
  - Hypertension [Unknown]
